FAERS Safety Report 18373677 (Version 1)
Quarter: 2020Q4

REPORT INFORMATION
  Report Type: Report from Study
  Country: None (occurrence: US)
  Receive Date: 20201013
  Receipt Date: 20201013
  Transmission Date: 20210114
  Serious: Yes (Hospitalization, Other)
  Sender: FDA-Public Use
  Company Number: US-ABBVIE-20K-163-3596141-00

PATIENT
  Sex: Male
  Weight: 88.53 kg

DRUGS (9)
  1. ALLOPURINOL. [Concomitant]
     Active Substance: ALLOPURINOL
     Indication: GOUT
  2. MYRBETRIQ [Concomitant]
     Active Substance: MIRABEGRON
     Indication: URINARY TRACT DISORDER
  3. ALFUZOSIN [Concomitant]
     Active Substance: ALFUZOSIN
     Indication: URINARY TRACT DISORDER
  4. CREON [Suspect]
     Active Substance: PANCRELIPASE AMYLASE\PANCRELIPASE LIPASE\PANCRELIPASE PROTEASE
     Dosage: 2 CAPSULES PER MEAL, 1 PER SNACK
     Route: 048
     Dates: start: 20200901
  5. METFORMIN [Concomitant]
     Active Substance: METFORMIN HYDROCHLORIDE
     Indication: PRODUCT USED FOR UNKNOWN INDICATION
  6. ASPIRIN. [Concomitant]
     Active Substance: ASPIRIN
     Indication: PRODUCT USED FOR UNKNOWN INDICATION
  7. ATORVASTATIN [Concomitant]
     Active Substance: ATORVASTATIN
     Indication: PRODUCT USED FOR UNKNOWN INDICATION
  8. CREON [Suspect]
     Active Substance: PANCRELIPASE AMYLASE\PANCRELIPASE LIPASE\PANCRELIPASE PROTEASE
     Indication: PANCREATIC FAILURE
     Dosage: 2 CAPSULES PER MEAL, 1 PER SNACK
     Route: 048
     Dates: start: 202004, end: 2020
  9. CREON [Suspect]
     Active Substance: PANCRELIPASE AMYLASE\PANCRELIPASE LIPASE\PANCRELIPASE PROTEASE
     Dosage: 1 CAPSULE PER MEAL
     Route: 048
     Dates: start: 20200713, end: 2020

REACTIONS (5)
  - Splenectomy [Unknown]
  - Adrenalectomy [Unknown]
  - Pancreatic neoplasm [Recovering/Resolving]
  - Gastrectomy [Unknown]
  - Nephrectomy [Unknown]

NARRATIVE: CASE EVENT DATE: 2020
